FAERS Safety Report 6895533-2 (Version None)
Quarter: 2010Q3

REPORT INFORMATION
  Report Type: 
  Country: None (occurrence: None)
  Receive Date: 20100802
  Receipt Date: 20100726
  Transmission Date: 20110219
  Serious: Yes (Death, Other)
  Sender: FDA-Public Use
  Company Number: PHHY2010US49031

PATIENT
  Sex: Male

DRUGS (1)
  1. GLEEVEC [Suspect]
     Indication: CHRONIC MYELOID LEUKAEMIA
     Dosage: UNK
     Route: 048
     Dates: start: 20071101

REACTIONS (4)
  - CARDIAC ARREST [None]
  - CLOSTRIDIAL INFECTION [None]
  - KNEE OPERATION [None]
  - POST PROCEDURAL COMPLICATION [None]
